FAERS Safety Report 5608999-2 (Version None)
Quarter: 2008Q1

REPORT INFORMATION
  Report Type: 
  Country: None (occurrence: None)
  Receive Date: 20080131
  Receipt Date: 20080125
  Transmission Date: 20080703
  Serious: Yes (Other)
  Sender: FDA-Public Use
  Company Number: FR-ELI_LILLY_AND_COMPANY-FR200712002651

PATIENT
  Age: 75 Year
  Sex: Female
  Weight: 68 kg

DRUGS (5)
  1. ZYPREXA [Suspect]
     Indication: BRIEF PSYCHOTIC DISORDER WITH MARKED STRESSORS
     Route: 048
     Dates: start: 20071129
  2. LESCOL [Concomitant]
     Indication: HYPERLIPIDAEMIA
     Dosage: 80 MG, DAILY (1/D)
     Route: 048
  3. QUITAXON [Concomitant]
     Indication: BRIEF PSYCHOTIC DISORDER WITH MARKED STRESSORS
     Dosage: 50 MG, DAILY (1/D)
     Route: 048
  4. HYTACAND [Concomitant]
     Indication: HYPERTENSION
     Dosage: UNK, UNKNOWN
     Route: 048
  5. KARDEGIC [Concomitant]
     Indication: HYPERLIPIDAEMIA
     Dosage: 75 MG, DAILY (1/D)
     Route: 048

REACTIONS (5)
  - BLOOD PRESSURE FLUCTUATION [None]
  - FALL [None]
  - HAEMATOMA [None]
  - HYPOTENSION [None]
  - TACHYCARDIA [None]
